FAERS Safety Report 9911456 (Version 1)
Quarter: 2014Q1

REPORT INFORMATION
  Report Type: Spontaneous
  Country: US (occurrence: US)
  Receive Date: 20140219
  Receipt Date: 20140219
  Transmission Date: 20141002
  Serious: Yes (Death, Hospitalization)
  Sender: FDA-Public Use
  Company Number: PHHY2014US019547

PATIENT
  Age: 52 Year
  Sex: Male

DRUGS (8)
  1. CICLOSPORIN [Suspect]
     Indication: HISTIOCYTOSIS HAEMATOPHAGIC
  2. CICLOSPORIN [Suspect]
     Indication: EPSTEIN-BARR VIRUS INFECTION
  3. SOLU-MEDROL [Suspect]
     Indication: HISTIOCYTOSIS HAEMATOPHAGIC
  4. SOLU-MEDROL [Suspect]
     Indication: EPSTEIN-BARR VIRUS INFECTION
  5. ANTITHYMOCYTE IMMUNOGLOBULIN (HORSE) [Suspect]
     Indication: HISTIOCYTOSIS HAEMATOPHAGIC
  6. ANTITHYMOCYTE IMMUNOGLOBULIN (HORSE) [Suspect]
     Indication: EPSTEIN-BARR VIRUS INFECTION
  7. AZITHROMYCIN [Suspect]
     Indication: PYREXIA
  8. PIPERACILIN/TAZOBACTAM [Suspect]
     Indication: PYREXIA

REACTIONS (7)
  - Multi-organ failure [Fatal]
  - Pyrexia [Unknown]
  - Coagulopathy [Unknown]
  - Histiocytosis haematophagic [Unknown]
  - General physical health deterioration [Unknown]
  - Shock [Unknown]
  - Drug ineffective [Unknown]
